FAERS Safety Report 20936731 (Version 1)
Quarter: 2022Q2

REPORT INFORMATION
  Report Type: Spontaneous
  Country: GB (occurrence: GB)
  Receive Date: 20220609
  Receipt Date: 20220609
  Transmission Date: 20220721
  Serious: Yes (Hospitalization, Other)
  Sender: FDA-Public Use
  Company Number: GB-AUROBINDO-AUR-APL-2018-061655

PATIENT
  Age: 73 Year
  Sex: Male

DRUGS (3)
  1. ATORVASTATIN [Suspect]
     Active Substance: ATORVASTATIN
     Indication: Product used for unknown indication
     Dosage: 80 MILLIGRAM
     Route: 065
  2. FUSIDIC ACID [Suspect]
     Active Substance: FUSIDIC ACID
     Indication: Wound infection
     Dosage: UNK
     Route: 065
     Dates: start: 201806
  3. FLUCLOXACILLIN. [Concomitant]
     Indication: Wound infection
     Dosage: UNK
     Route: 065
     Dates: start: 201806

REACTIONS (4)
  - Labelled drug-drug interaction medication error [Unknown]
  - Chromaturia [Unknown]
  - Rhabdomyolysis [Unknown]
  - Myalgia [Unknown]
